FAERS Safety Report 8719250 (Version 3)
Quarter: 2012Q4

REPORT INFORMATION
  Report Type: 
  Country: FR (occurrence: FR)
  Receive Date: 20120813
  Receipt Date: 20121008
  Transmission Date: 20130627
  Serious: Yes (Life-Threatening, Hospitalization)
  Sender: FDA-Public Use
  Company Number: FR-BRISTOL-MYERS SQUIBB COMPANY-16831760

PATIENT
  Age: 66 Year
  Sex: Male

DRUGS (4)
  1. REYATAZ CAPS 300 MG [Suspect]
     Indication: HIV INFECTION
     Dosage: Also 1.5microgram/ml, 7microgram/ml on 26Jun08
Inter on 17feb12
18Mar12-Jul12
     Route: 048
     Dates: start: 20080514, end: 201207
  2. TRUVADA [Suspect]
     Indication: HIV INFECTION
     Dosage: Inter on 17feb12
resumed on 18Mar12
     Dates: start: 20080514
  3. NORVIR [Suspect]
     Indication: HIV INFECTION
     Dosage: Unk-17feb12
resumed on 18Mar12-ongng
  4. VENLAFAXINE HYDROCHLORIDE [Concomitant]

REACTIONS (17)
  - Cholecystitis [Recovered/Resolved]
  - Pancreatic pseudocyst [Not Recovered/Not Resolved]
  - Pancreatitis acute [None]
  - Pneumonia [None]
  - Renal failure [None]
  - Hypoxia [None]
  - Hypercapnia [None]
  - Coma [None]
  - Ascites [None]
  - Pancreatic necrosis [None]
  - Haemoglobin decreased [None]
  - Sepsis [None]
  - Respiratory acidosis [None]
  - Candida test positive [None]
  - Staphylococcus test positive [None]
  - Neuromyopathy [None]
  - Haemorrhage [None]
